FAERS Safety Report 15660987 (Version 1)
Quarter: 2018Q4

REPORT INFORMATION
  Report Type: Report from Study
  Country: CA (occurrence: CA)
  Receive Date: 20181127
  Receipt Date: 20181127
  Transmission Date: 20190205
  Serious: Yes (Other)
  Sender: FDA-Public Use
  Company Number: CA-JNJFOC-20181127439

PATIENT
  Sex: Female
  Weight: 97 kg

DRUGS (1)
  1. REMICADE [Suspect]
     Active Substance: INFLIXIMAB
     Indication: PSORIATIC ARTHROPATHY
     Dosage: STRENGTH = 100 MG
     Route: 042

REACTIONS (5)
  - Haematochezia [Unknown]
  - Back pain [Unknown]
  - Blood iron decreased [Unknown]
  - Pancreatic neoplasm [Unknown]
  - Abdominal pain [Unknown]
